FAERS Safety Report 4370989-8 (Version None)
Quarter: 2004Q2

REPORT INFORMATION
  Report Type: 
  Country: None (occurrence: None)
  Receive Date: 20040601
  Receipt Date: 20040514
  Transmission Date: 20050107
  Serious: Yes (Death)
  Sender: FDA-Public Use
  Company Number: 206643

PATIENT
  Age: 54 Year
  Sex: Male
  Weight: 123 kg

DRUGS (3)
  1. BEVACIZUMAB OR PLACEBO (BEVACIZUMAB) PWDR + SOLVENT INFUSION SOLN 100 [Suspect]
     Indication: COLORECTAL CANCER METASTATIC
     Dosage: 922 MG Q3W INTRAVENOUS
     Route: 042
     Dates: start: 20040505, end: 20040505
  2. CAPECITABINE (CAPECITABINE) [Suspect]
     Indication: COLORECTAL CANCER METASTATIC
     Dosage: 2300 MG BID ORAL
     Route: 048
     Dates: start: 20040505, end: 20040513
  3. OXALIPLATIN [Suspect]
     Indication: COLORECTAL CANCER METASTATIC
     Dosage: 285 MG Q3W INTRAVENOUS
     Route: 042
     Dates: start: 20040505, end: 20040505

REACTIONS (1)
  - SUDDEN DEATH [None]
